FAERS Safety Report 4853568-5 (Version None)
Quarter: 2005Q4

REPORT INFORMATION
  Report Type: 
  Country: None (occurrence: None)
  Receive Date: 20051209
  Receipt Date: 20051126
  Transmission Date: 20060501
  Serious: Yes (Hospitalization, Other)
  Sender: FDA-Public Use
  Company Number: 2005138089

PATIENT
  Age: 83 Year
  Sex: Female

DRUGS (6)
  1. LYRICA [Suspect]
     Indication: NEUROPATHY
     Dosage: 150 MG (75 MG, 2 IN 1 D), ORAL
     Route: 048
     Dates: start: 20050923, end: 20050927
  2. NEURONTIN [Suspect]
     Indication: ILL-DEFINED DISORDER
  3. PLAVIX [Concomitant]
  4. ACETAMINOPHEN [Concomitant]
  5. PEPCID AC [Concomitant]
  6. COMBIVENT [Concomitant]

REACTIONS (8)
  - ASTHENIA [None]
  - BALANCE DISORDER [None]
  - CEREBRAL ATROPHY [None]
  - CEREBRAL ISCHAEMIA [None]
  - DYSARTHRIA [None]
  - FALL [None]
  - MENTAL STATUS CHANGES [None]
  - UNEVALUABLE EVENT [None]
